FAERS Safety Report 4647392-6 (Version None)
Quarter: 2005Q2

REPORT INFORMATION
  Report Type: 
  Country: None (occurrence: None)
  Receive Date: 20050426
  Receipt Date: 20050412
  Transmission Date: 20051028
  Serious: No
  Sender: FDA-Public Use
  Company Number: 2004SE03464

PATIENT
  Age: 64 Year
  Sex: Male

DRUGS (2)
  1. NEXIUM [Suspect]
     Indication: GASTRITIS
     Dosage: 40 MG DAILY PO
     Route: 048
     Dates: start: 20040516, end: 20040516
  2. NEXIUM [Suspect]
     Indication: GASTRITIS
     Dosage: 40 MG DAILY PO
     Route: 048

REACTIONS (7)
  - DISORIENTATION [None]
  - DRUG EFFECT DECREASED [None]
  - HEADACHE [None]
  - HYPERPYREXIA [None]
  - HYPOREFLEXIA [None]
  - MOVEMENT DISORDER [None]
  - MYALGIA [None]
